FAERS Safety Report 17870790 (Version 1)
Quarter: 2020Q2

REPORT INFORMATION
  Report Type: Spontaneous
  Country: CA (occurrence: CA)
  Receive Date: 20200608
  Receipt Date: 20200608
  Transmission Date: 20200714
  Serious: Yes (Hospitalization)
  Sender: FDA-Public Use
  Company Number: CA-ROCHE-2612268

PATIENT
  Age: 44 Year
  Sex: Female
  Weight: 51 kg

DRUGS (2)
  1. BEVACIZUMAB. [Suspect]
     Active Substance: BEVACIZUMAB
     Indication: OVARIAN CANCER
     Route: 042
  2. CISPLATIN. [Suspect]
     Active Substance: CISPLATIN
     Indication: PRODUCT USED FOR UNKNOWN INDICATION
     Route: 065

REACTIONS (24)
  - Blood magnesium decreased [Not Recovered/Not Resolved]
  - Blood pressure systolic increased [Not Recovered/Not Resolved]
  - Food poisoning [Not Recovered/Not Resolved]
  - Hypertension [Not Recovered/Not Resolved]
  - Diarrhoea [Not Recovered/Not Resolved]
  - Influenza like illness [Not Recovered/Not Resolved]
  - Blood pressure increased [Not Recovered/Not Resolved]
  - Haemoglobin decreased [Not Recovered/Not Resolved]
  - Intestinal obstruction [Not Recovered/Not Resolved]
  - Nausea [Not Recovered/Not Resolved]
  - Protein total decreased [Not Recovered/Not Resolved]
  - Abdominal wall disorder [Not Recovered/Not Resolved]
  - Pyrexia [Not Recovered/Not Resolved]
  - Renal disorder [Not Recovered/Not Resolved]
  - Vomiting [Not Recovered/Not Resolved]
  - Infection [Not Recovered/Not Resolved]
  - Influenza [Not Recovered/Not Resolved]
  - Weight decreased [Not Recovered/Not Resolved]
  - Ascites [Not Recovered/Not Resolved]
  - Blood potassium decreased [Not Recovered/Not Resolved]
  - Gastrooesophageal reflux disease [Not Recovered/Not Resolved]
  - Musculoskeletal pain [Not Recovered/Not Resolved]
  - Nasopharyngitis [Not Recovered/Not Resolved]
  - Neuropathy peripheral [Not Recovered/Not Resolved]
